FAERS Safety Report 16710250 (Version 1)
Quarter: 2019Q3

REPORT INFORMATION
  Report Type: Spontaneous
  Country: US (occurrence: US)
  Receive Date: 20190701
  Receipt Date: 20190701
  Transmission Date: 20191004
  Serious: Yes (Other)
  Sender: FDA-Public Use
  Company Number: None

PATIENT
  Sex: Female

DRUGS (4)
  1. XOLAIR [Suspect]
     Active Substance: OMALIZUMAB
     Route: 058
     Dates: start: 20190321
  2. HYDROXYCHLOR TAB 200MG [Concomitant]
     Active Substance: HYDROXYCHLOROQUINE
  3. RANITIDINE TAB 150 MG [Concomitant]
  4. SERTRAALINE TAB 100MG [Concomitant]

REACTIONS (2)
  - Urticaria [None]
  - Throat tightness [None]
